FAERS Safety Report 23692597 (Version 1)
Quarter: 2024Q2

REPORT INFORMATION
  Report Type: Spontaneous
  Country: US (occurrence: US)
  Receive Date: 20240401
  Receipt Date: 20240401
  Transmission Date: 20240716
  Serious: Yes (Other)
  Sender: FDA-Public Use
  Company Number: US-009507513-2403USA008418

PATIENT
  Age: 70 Year
  Sex: Male

DRUGS (3)
  1. KEYTRUDA [Suspect]
     Active Substance: PEMBROLIZUMAB
     Indication: Malignant melanoma
     Dosage: UNK UNK, Q3W, ROUTE: INFUSION
     Dates: start: 202307, end: 202307
  2. KEYTRUDA [Suspect]
     Active Substance: PEMBROLIZUMAB
     Dosage: UNK, ROUTE: INFUSION
     Dates: start: 2023
  3. MINERALS\VITAMINS [Concomitant]
     Active Substance: MINERALS\VITAMINS

REACTIONS (5)
  - Drug-induced liver injury [Recovering/Resolving]
  - Hypoaesthesia [Unknown]
  - Vocal cord paralysis [Unknown]
  - Eyelid ptosis [Unknown]
  - Visual impairment [Unknown]

NARRATIVE: CASE EVENT DATE: 20230101
